FAERS Safety Report 7473898-0 (Version None)
Quarter: 2011Q2

REPORT INFORMATION
  Report Type: 
  Country: None (occurrence: None)
  Receive Date: 20110511
  Receipt Date: 20110504
  Transmission Date: 20111010
  Serious: Yes (Hospitalization)
  Sender: FDA-Public Use
  Company Number: US-SANOFI-AVENTIS-2011SA027713

PATIENT
  Sex: Female

DRUGS (3)
  1. MAGNESIUM HYDROXIDE [Concomitant]
  2. ZANTAC [Concomitant]
     Dosage: AT SUPPER
  3. PLAVIX [Suspect]
     Route: 048

REACTIONS (1)
  - ILL-DEFINED DISORDER [None]
